FAERS Safety Report 9248248 (Version 3)
Quarter: 2013Q2

REPORT INFORMATION
  Report Type: Spontaneous
  Country: US (occurrence: US)
  Receive Date: 20130423
  Receipt Date: 20130522
  Transmission Date: 20140414
  Serious: Yes (Disabling, Other)
  Sender: FDA-Public Use
  Company Number: US-PFIZER INC-2013125277

PATIENT
  Age: 52 Year
  Sex: Female
  Weight: 107.94 kg

DRUGS (7)
  1. PRISTIQ [Suspect]
     Indication: DEPRESSION
     Dosage: 100 MG, 1X/DAY
     Route: 048
  2. CARBATROL [Concomitant]
     Indication: CONVULSION
     Dosage: 300 MG, UNK
  3. DOXAZOSIN [Concomitant]
     Indication: CONVULSION
     Dosage: UNK
  4. LEVETIRACETAM [Concomitant]
     Indication: CONVULSION
     Dosage: UNK
  5. LABETALOL [Concomitant]
     Indication: HYPERTENSION
     Dosage: 200 MG, UNK
  6. LISINOPRIL [Concomitant]
     Indication: HYPERTENSION
     Dosage: UNK
  7. MELOXICAM [Concomitant]
     Indication: EXOSTOSIS
     Dosage: UNK

REACTIONS (2)
  - Convulsion [Unknown]
  - Memory impairment [Unknown]
